FAERS Safety Report 8471260-5 (Version None)
Quarter: 2012Q2

REPORT INFORMATION
  Report Type: 
  Country: None (occurrence: None)
  Receive Date: 20120627
  Receipt Date: 20120619
  Transmission Date: 20120825
  Serious: Yes (Other)
  Sender: FDA-Public Use
  Company Number: JP-FRI-1000036631

PATIENT
  Age: 90 Year
  Sex: Female

DRUGS (4)
  1. MEMANTINE HCL [Suspect]
     Dosage: 20 MG
     Route: 048
  2. MEMANTINE HCL [Suspect]
     Indication: DEMENTIA
     Dosage: 5 MG
     Route: 048
  3. MEMANTINE HCL [Suspect]
     Dosage: 10 MG
     Route: 048
  4. MEMANTINE HCL [Suspect]
     Dosage: 15 MG
     Route: 048

REACTIONS (1)
  - ALTERED STATE OF CONSCIOUSNESS [None]
